FAERS Safety Report 19609531 (Version 1)
Quarter: 2021Q3

REPORT INFORMATION
  Report Type: Spontaneous
  Country: CN (occurrence: CN)
  Receive Date: 20210726
  Receipt Date: 20210726
  Transmission Date: 20211014
  Serious: Yes (Other)
  Sender: FDA-Public Use
  Company Number: CN-ACCORD-232612

PATIENT
  Age: 36 Year
  Sex: Female

DRUGS (3)
  1. CISPLATIN. [Suspect]
     Active Substance: CISPLATIN
     Indication: EXTRAGONADAL PRIMARY GERM CELL TUMOUR
     Dosage: 5 CYCLICAL
     Dates: start: 201712, end: 2018
  2. BLEOMYCIN [Suspect]
     Active Substance: BLEOMYCIN SULFATE
     Indication: EXTRAGONADAL PRIMARY GERM CELL TUMOUR
     Dosage: 5 CYCLICAL
     Dates: start: 201712, end: 2018
  3. ETOPOSIDE. [Suspect]
     Active Substance: ETOPOSIDE
     Indication: EXTRAGONADAL PRIMARY GERM CELL TUMOUR
     Dosage: 5 CYCLICAL
     Dates: start: 201712, end: 2018

REACTIONS (1)
  - Alanine aminotransferase increased [Unknown]

NARRATIVE: CASE EVENT DATE: 2018
